FAERS Safety Report 9995659 (Version 1)
Quarter: 2014Q1

REPORT INFORMATION
  Report Type: Spontaneous
  Country: US (occurrence: None)
  Receive Date: 20140310
  Receipt Date: 20140310
  Transmission Date: 20141002
  Serious: Yes (Other)
  Sender: FDA-Public Use
  Company Number: None

PATIENT
  Age: 42 Year
  Sex: Female
  Weight: 54.43 kg

DRUGS (1)
  1. GABAPENTIN [Suspect]
     Indication: PAIN
     Dosage: GABAPENTIN 600MG  TID  PO?2007  SEVERAL MONTHS
     Route: 048
     Dates: start: 2007

REACTIONS (2)
  - Rash [None]
  - Drug ineffective [None]
